FAERS Safety Report 5720208-2 (Version None)
Quarter: 2008Q2

REPORT INFORMATION
  Report Type: 
  Country: None (occurrence: None)
  Receive Date: 20080428
  Receipt Date: 20071012
  Transmission Date: 20081010
  Serious: No
  Sender: FDA-Public Use
  Company Number: US-AMGEN-US247811

PATIENT
  Sex: Female

DRUGS (8)
  1. SENSIPAR [Suspect]
     Indication: HYPERPARATHYROIDISM PRIMARY
     Dates: start: 20061001
  2. ACTONEL [Concomitant]
  3. SIMVASTATIN [Concomitant]
  4. SYNTHROID [Concomitant]
  5. AMBIEN [Concomitant]
  6. HYDROCODONE BITARTRATE [Concomitant]
  7. MAALOX [Concomitant]
  8. PREVACID [Concomitant]

REACTIONS (2)
  - DIARRHOEA [None]
  - DYSPHAGIA [None]
